FAERS Safety Report 5855008-6 (Version None)
Quarter: 2008Q3

REPORT INFORMATION
  Report Type: 
  Country: None (occurrence: None)
  Receive Date: 20080822
  Receipt Date: 20080513
  Transmission Date: 20090109
  Serious: No
  Sender: FDA-Public Use
  Company Number: US-ABBOTT-08P-163-0451742-00

PATIENT
  Sex: Female
  Weight: 49.032 kg

DRUGS (8)
  1. SYNTHROID [Suspect]
     Indication: HORMONE REPLACEMENT THERAPY
     Dosage: BY MOUTH AT 5 AM CST EACH DAY
     Dates: start: 20060501, end: 20080416
  2. SYNTHROID [Suspect]
     Dosage: BY MOUTH AT 5 AM CST EACH DAY
     Route: 048
     Dates: start: 20080513
  3. CELECOXIB [Suspect]
     Indication: TRIGGER FINGER
     Route: 048
  4. CALCIUM CITRATE [Concomitant]
     Indication: OSTEOPOROSIS PROPHYLAXIS
     Dosage: BY MOUTH
     Dates: start: 20060101
  5. ASTHMA INHALER [Concomitant]
     Indication: ASTHMA
     Route: 055
     Dates: start: 20060101
  6. OCCUVITE WITHOUT SOY [Concomitant]
     Indication: MACULAR DEGENERATION
     Dosage: BY MOUTH
  7. COLECALCIFEROL [Concomitant]
     Indication: DRUG USE FOR UNKNOWN INDICATION
     Dates: start: 20060101
  8. HRT [Concomitant]
     Indication: HORMONE REPLACEMENT THERAPY
     Dosage: 12 HRS FROM SYNTHROID
     Route: 048

REACTIONS (2)
  - THYROXINE FREE INCREASED [None]
  - TRIGGER FINGER [None]
